FAERS Safety Report 8074363-2 (Version None)
Quarter: 2012Q1

REPORT INFORMATION
  Report Type: 
  Country: None (occurrence: None)
  Receive Date: 20120126
  Receipt Date: 20120123
  Transmission Date: 20120608
  Serious: Yes (Hospitalization)
  Sender: FDA-Public Use
  Company Number: US-GLAXOSMITHKLINE-A0915630A

PATIENT
  Age: 50 Year
  Sex: Male
  Weight: 147.7 kg

DRUGS (10)
  1. GLUCOPHAGE [Concomitant]
  2. GLIPIZIDE [Concomitant]
  3. TOPROL-XL [Concomitant]
  4. XENICAL [Concomitant]
  5. LOTREL [Concomitant]
  6. ACTOS [Concomitant]
  7. AVANDIA [Suspect]
     Indication: DIABETES MELLITUS
     Dosage: 4MG PER DAY
     Route: 048
     Dates: start: 20010727
  8. AVANDARYL [Suspect]
     Indication: DIABETES MELLITUS
     Dosage: 2TAB PER DAY
     Route: 048
     Dates: start: 20060101, end: 20060101
  9. INSULIN [Concomitant]
  10. ZOCOR [Concomitant]

REACTIONS (4)
  - STENT PLACEMENT [None]
  - CEREBROVASCULAR ACCIDENT [None]
  - CARDIAC FAILURE CONGESTIVE [None]
  - TRANSIENT ISCHAEMIC ATTACK [None]
